FAERS Safety Report 6249730-X (Version None)
Quarter: 2009Q2

REPORT INFORMATION
  Report Type: 
  Country: None (occurrence: None)
  Receive Date: 20090629
  Receipt Date: 20090628
  Transmission Date: 20091009
  Serious: Yes (Death)
  Sender: FDA-Public Use
  Company Number: JP-JNJFOC-20080203939

PATIENT
  Sex: Male
  Weight: 49 kg

DRUGS (4)
  1. RISPERDAL [Suspect]
     Indication: SCHIZOPHRENIA, PARANOID TYPE
     Route: 048
  2. BENZALIN [Concomitant]
  3. PURSENNID [Concomitant]
     Indication: CONSTIPATION
  4. MAGNESIUM OXIDE [Concomitant]
     Indication: CONSTIPATION

REACTIONS (2)
  - ASPHYXIA [None]
  - VOMITING [None]
